FAERS Safety Report 5623337-7 (Version None)
Quarter: 2008Q1

REPORT INFORMATION
  Report Type: 
  Country: None (occurrence: None)
  Receive Date: 20080212
  Receipt Date: 20080130
  Transmission Date: 20080703
  Serious: Yes (Other)
  Sender: FDA-Public Use
  Company Number: FR-ROCHE-545183

PATIENT
  Sex: Female

DRUGS (5)
  1. CELLCEPT [Suspect]
     Route: 065
  2. NEORAL [Concomitant]
  3. TRIFLUCAN [Concomitant]
  4. BACTRIM [Concomitant]
  5. ROVALCYTE [Concomitant]

REACTIONS (1)
  - CYTOLYTIC HEPATITIS [None]
